FAERS Safety Report 8446413-2 (Version None)
Quarter: 2012Q2

REPORT INFORMATION
  Report Type: 
  Country: None (occurrence: None)
  Receive Date: 20120618
  Receipt Date: 20120423
  Transmission Date: 20120825
  Serious: No
  Sender: FDA-Public Use
  Company Number: US-TEVA-327661USA

PATIENT
  Sex: Female
  Weight: 65.83 kg

DRUGS (7)
  1. OXYCODONE HCL [Concomitant]
     Indication: POST LAMINECTOMY SYNDROME
     Dosage: 240 MILLIGRAM;
     Route: 048
     Dates: start: 20110101
  2. FENTANYL-100 [Concomitant]
     Indication: POST LAMINECTOMY SYNDROME
     Dosage: 150 MICROGRAM;
     Route: 062
     Dates: start: 20080101
  3. DONEPEZIL HCL [Concomitant]
     Indication: CONSTIPATION
     Dosage: 10 MILLIGRAM;
     Route: 048
     Dates: start: 20060101
  4. ACTIQ [Suspect]
     Indication: POST LAMINECTOMY SYNDROME
     Route: 002
     Dates: start: 20100101, end: 20120312
  5. CLONAZEPAM [Concomitant]
     Indication: CONVULSION
     Dosage: 1 MILLIGRAM;
     Route: 048
     Dates: start: 20040101
  6. ZOLPIDEM TARTRATE [Concomitant]
     Indication: SLEEP DISORDER
     Dosage: 10 MILLIGRAM;
     Route: 048
     Dates: start: 20100101
  7. CARISOPRODOL [Concomitant]
     Indication: MUSCLE DISORDER
     Dosage: 1050 MILLIGRAM;
     Route: 048
     Dates: start: 20070101

REACTIONS (4)
  - CONSTIPATION [None]
  - TOOTH DISORDER [None]
  - OFF LABEL USE [None]
  - DRUG PRESCRIBING ERROR [None]
